FAERS Safety Report 15954790 (Version 1)
Quarter: 2019Q1

REPORT INFORMATION
  Report Type: Spontaneous
  Country: DE (occurrence: DE)
  Receive Date: 20190213
  Receipt Date: 20190213
  Transmission Date: 20190417
  Serious: Yes (Other)
  Sender: FDA-Public Use
  Company Number: DE-SA-2019SA040606

PATIENT
  Sex: Male

DRUGS (1)
  1. DUPIXENT [Suspect]
     Active Substance: DUPILUMAB
     Indication: PRODUCT USED FOR UNKNOWN INDICATION
     Dosage: 600 MG
     Route: 058
     Dates: start: 20190117, end: 20190117

REACTIONS (7)
  - Tremor [Recovering/Resolving]
  - Malaise [Recovering/Resolving]
  - Eczema [Recovering/Resolving]
  - Skin infection [Recovering/Resolving]
  - Haemorrhage [Recovering/Resolving]
  - Body temperature increased [Recovering/Resolving]
  - Pruritus [Recovering/Resolving]

NARRATIVE: CASE EVENT DATE: 20190118
